FAERS Safety Report 4667771-0 (Version None)
Quarter: 2005Q2

REPORT INFORMATION
  Report Type: 
  Country: None (occurrence: None)
  Receive Date: 20050520
  Receipt Date: 20041203
  Transmission Date: 20051028
  Serious: Yes (Other)
  Sender: FDA-Public Use
  Company Number: GB-GLAXOSMITHKLINE-B0359839A

PATIENT
  Sex: Female

DRUGS (7)
  1. PAROXETINE HCL [Suspect]
     Route: 065
  2. PAROXETINE HCL [Suspect]
     Route: 048
  3. DIAZEPAM [Concomitant]
     Route: 065
  4. ATENOLOL [Concomitant]
     Route: 065
  5. TRIPTAFEN [Concomitant]
     Route: 065
  6. VENLAFAXINE HCL [Concomitant]
     Route: 065
  7. TEMAZEPAM [Concomitant]
     Route: 065

REACTIONS (15)
  - AGGRESSION [None]
  - ANORGASMIA [None]
  - CONSTIPATION [None]
  - DRUG WITHDRAWAL SYNDROME [None]
  - FATIGUE [None]
  - FLUSHING [None]
  - HYPERHIDROSIS [None]
  - IRRITABILITY [None]
  - MALAISE [None]
  - MUSCLE SPASMS [None]
  - MUSCLE TWITCHING [None]
  - PANIC REACTION [None]
  - PARAESTHESIA [None]
  - SOMNOLENCE [None]
  - VISION BLURRED [None]
